FAERS Safety Report 17836379 (Version 2)
Quarter: 2020Q2

REPORT INFORMATION
  Report Type: Spontaneous
  Country: DE (occurrence: DE)
  Receive Date: 20200529
  Receipt Date: 20200627
  Transmission Date: 20200714
  Serious: Yes (Hospitalization)
  Sender: FDA-Public Use
  Company Number: DE-JNJFOC-20200527555

PATIENT
  Age: 12 Year
  Sex: Male
  Weight: 54 kg

DRUGS (2)
  1. IBUPROFEN. [Suspect]
     Active Substance: IBUPROFEN
     Indication: PYREXIA
     Dosage: INTAKE IF NEEDED LAST DATE: 16-DEC-2019
     Route: 048
     Dates: end: 20191216
  2. CEFUROXIM [Suspect]
     Active Substance: CEFUROXIME
     Indication: PYREXIA
     Dosage: DAILY DOSE: 1000 MG MILLGRAM(S) EVERY DAYS 2 SEPARATED DOSES
     Route: 048
     Dates: start: 20191213, end: 20191216

REACTIONS (1)
  - Pyrexia [Recovered/Resolved]

NARRATIVE: CASE EVENT DATE: 201912
